FAERS Safety Report 22326439 (Version 1)
Quarter: 2023Q2

REPORT INFORMATION
  Report Type: Spontaneous
  Country: US (occurrence: US)
  Receive Date: 20230516
  Receipt Date: 20230516
  Transmission Date: 20230721
  Serious: No
  Sender: FDA-Public Use
  Company Number: US-RADIUS HEALTH INC.-2022US002576

PATIENT
  Age: 64 Year
  Sex: Female
  Weight: 58.503 kg

DRUGS (1)
  1. TYMLOS [Suspect]
     Active Substance: ABALOPARATIDE
     Indication: Senile osteoporosis
     Dosage: 80 MICROGRAM, QD
     Route: 058
     Dates: start: 20210811

REACTIONS (2)
  - Illness [Unknown]
  - Product storage error [Unknown]

NARRATIVE: CASE EVENT DATE: 20220526
